FAERS Safety Report 8859946 (Version 2)
Quarter: 2012Q4

REPORT INFORMATION
  Report Type: 
  Country: MT (occurrence: MT)
  Receive Date: 20121025
  Receipt Date: 20121106
  Transmission Date: 20130627
  Serious: Yes (Hospitalization)
  Sender: FDA-Public Use
  Company Number: MT-SANOFI-AVENTIS-2012SA076193

PATIENT
  Age: 42 Year
  Sex: Female

DRUGS (5)
  1. CLEXANE [Suspect]
     Indication: PORTAL VEIN THROMBOSIS
     Route: 058
     Dates: start: 20120210
  2. BUMETANIDE [Concomitant]
     Indication: ASCITES
     Route: 048
     Dates: start: 20120224, end: 20121009
  3. SPIRONOLACTONE [Concomitant]
     Indication: ASCITES
     Route: 048
     Dates: start: 20120224, end: 20121009
  4. PROPRANOLOL [Concomitant]
     Indication: VARICOSE VEINS
     Route: 048
     Dates: start: 20120224, end: 20121009
  5. OMEPRAZOLE [Concomitant]
     Indication: ULCER NOS
     Route: 048
     Dates: start: 20120224, end: 20121009

REACTIONS (2)
  - Osteoporosis [Recovering/Resolving]
  - Spinal fracture [Recovering/Resolving]
